FAERS Safety Report 6739900-6 (Version None)
Quarter: 2010Q2

REPORT INFORMATION
  Report Type: 
  Country: None (occurrence: None)
  Receive Date: 20100525
  Receipt Date: 20100518
  Transmission Date: 20101027
  Serious: Yes (Other)
  Sender: FDA-Public Use
  Company Number: DE-PFIZER INC-2010062075

PATIENT
  Age: 65 Year
  Sex: Male

DRUGS (1)
  1. ZOLOFT [Suspect]
     Dosage: 100 MG, UNK
     Route: 048
     Dates: start: 20100201

REACTIONS (1)
  - SPERMATOZOA ABNORMAL [None]
